FAERS Safety Report 12207875 (Version 5)
Quarter: 2017Q3

REPORT INFORMATION
  Report Type: Spontaneous
  Country: CN (occurrence: CN)
  Receive Date: 20160324
  Receipt Date: 20170825
  Transmission Date: 20171127
  Serious: Yes (Hospitalization, Other)
  Sender: FDA-Public Use
  Company Number: CN-009507513-1603CHN010975

PATIENT
  Age: 50 Year
  Sex: Female

DRUGS (5)
  1. NORETHINDRONE. [Suspect]
     Active Substance: NORETHINDRONE
     Indication: MENORRHAGIA
     Dosage: 5 MG, TID
  2. MARVELON [Suspect]
     Active Substance: DESOGESTREL\ETHINYL ESTRADIOL
     Indication: PRODUCT USED FOR UNKNOWN INDICATION
     Dosage: UNK
     Route: 048
     Dates: start: 2014, end: 2015
  3. NORETHINDRONE. [Concomitant]
     Active Substance: NORETHINDRONE
     Indication: MENORRHAGIA
     Dosage: 5 MG, Q3HR
     Route: 048
  4. NORETHINDRONE. [Suspect]
     Active Substance: NORETHINDRONE
     Dosage: UNK
  5. LEUPROLIDE ACETATE. [Suspect]
     Active Substance: LEUPROLIDE ACETATE
     Indication: PRODUCT USED FOR UNKNOWN INDICATION
     Dosage: 3.75 MG, UNK
     Route: 058

REACTIONS (7)
  - Uterine enlargement [Unknown]
  - Pulmonary embolism [Recovering/Resolving]
  - Acute kidney injury [Recovering/Resolving]
  - Renal embolism [Recovering/Resolving]
  - Antiphospholipid syndrome [Recovering/Resolving]
  - Multiple organ dysfunction syndrome [Recovering/Resolving]
  - Cerebral infarction [Recovering/Resolving]
